FAERS Safety Report 10276850 (Version 2)
Quarter: 2014Q3

REPORT INFORMATION
  Report Type: Spontaneous
  Country: US (occurrence: US)
  Receive Date: 20140703
  Receipt Date: 20140724
  Transmission Date: 20150326
  Serious: No
  Sender: FDA-Public Use
  Company Number: US-BAYER-2014-098546

PATIENT
  Age: 66 Year
  Sex: Female
  Weight: 79 kg

DRUGS (9)
  1. LEVEMIR [Concomitant]
     Active Substance: INSULIN DETEMIR
  2. VICTOZA [Concomitant]
     Active Substance: LIRAGLUTIDE
  3. BAYER LOW DOSE [Concomitant]
     Active Substance: ASPIRIN
  4. CALTRATE [CALCIUM CARBONATE] [Concomitant]
  5. FISH OIL [Concomitant]
     Active Substance: FISH OIL
  6. ALEVE [Suspect]
     Active Substance: NAPROXEN SODIUM
     Indication: LOCAL SWELLING
     Dosage: 2 DF, UNK
     Route: 048
     Dates: start: 20140625
  7. SINGULAIR [Concomitant]
     Active Substance: MONTELUKAST SODIUM
  8. CENTRUM SILVER [Concomitant]
     Active Substance: VITAMINS
  9. SIMVASTATIN. [Concomitant]
     Active Substance: SIMVASTATIN

REACTIONS (2)
  - Intentional product misuse [Unknown]
  - Incorrect dose administered [Unknown]

NARRATIVE: CASE EVENT DATE: 20140625
